FAERS Safety Report 20148479 (Version 1)
Quarter: 2021Q4

REPORT INFORMATION
  Report Type: Report from Study
  Country: US (occurrence: US)
  Receive Date: 20211205
  Receipt Date: 20211205
  Transmission Date: 20220304
  Serious: Yes (Other)
  Sender: FDA-Public Use
  Company Number: US-ABBVIE-21K-163-4184528-00

PATIENT
  Sex: Male
  Weight: 45.400 kg

DRUGS (15)
  1. CREON [Suspect]
     Active Substance: PANCRELIPASE AMYLASE\PANCRELIPASE LIPASE\PANCRELIPASE PROTEASE
     Indication: Pancreatic failure
     Dosage: STARTED AROUND APRIL OR MAY AND DOSE INCREASED IN MARCH OR APRIL
     Route: 048
     Dates: start: 2020, end: 2021
  2. CREON [Suspect]
     Active Substance: PANCRELIPASE AMYLASE\PANCRELIPASE LIPASE\PANCRELIPASE PROTEASE
     Dosage: STARTED AROUND MARCH OR APRIL AND REDUCED FOR LESS FREQUENT FEED
     Route: 048
     Dates: start: 2021, end: 202109
  3. CREON [Suspect]
     Active Substance: PANCRELIPASE AMYLASE\PANCRELIPASE LIPASE\PANCRELIPASE PROTEASE
     Route: 048
     Dates: start: 202109
  4. MODERNA COVID-19 VACCINE [Concomitant]
     Active Substance: ELASOMERAN
     Indication: COVID-19 immunisation
     Dosage: MODERNA
     Route: 030
     Dates: start: 202103, end: 202103
  5. MODERNA COVID-19 VACCINE [Concomitant]
     Active Substance: ELASOMERAN
     Dosage: MODERNA
     Route: 030
     Dates: start: 202104, end: 202104
  6. MODERNA COVID-19 VACCINE [Concomitant]
     Active Substance: ELASOMERAN
     Dosage: MODERNA BOOSTER
     Route: 030
     Dates: start: 202110, end: 202110
  7. POTASSIUM CHLORIDE [Concomitant]
     Active Substance: POTASSIUM CHLORIDE
     Indication: Hypokalaemia
  8. PROTONIX [Concomitant]
     Active Substance: PANTOPRAZOLE SODIUM
     Indication: Gastrooesophageal reflux prophylaxis
  9. CLARITIN [Concomitant]
     Active Substance: LORATADINE
     Indication: Sinus disorder
  10. MORPHINE [Concomitant]
     Active Substance: MORPHINE
     Indication: Back pain
  11. MORPHINE [Concomitant]
     Active Substance: MORPHINE
     Indication: Tumour pain
  12. OXYCODONE [Concomitant]
     Active Substance: OXYCODONE
     Indication: Back pain
  13. OXYCODONE [Concomitant]
     Active Substance: OXYCODONE
     Indication: Tumour pain
  14. LORAZEPAM [Concomitant]
     Active Substance: LORAZEPAM
     Indication: Anxiety
  15. AMBIEN [Concomitant]
     Active Substance: ZOLPIDEM TARTRATE
     Indication: Insomnia

REACTIONS (5)
  - Gastrointestinal stromal tumour [Not Recovered/Not Resolved]
  - Intestinal obstruction [Recovered/Resolved with Sequelae]
  - Regurgitation [Not Recovered/Not Resolved]
  - Product dispensing error [Unknown]
  - Flatulence [Not Recovered/Not Resolved]

NARRATIVE: CASE EVENT DATE: 20210101
